FAERS Safety Report 18743867 (Version 1)
Quarter: 2021Q1

REPORT INFORMATION
  Report Type: Report from Study
  Country: US (occurrence: US)
  Receive Date: 20210115
  Receipt Date: 20210115
  Transmission Date: 20210419
  Serious: Yes (Other)
  Sender: FDA-Public Use
  Company Number: US-SA-2016SA031532

PATIENT
  Age: 66 Year
  Sex: Female

DRUGS (3)
  1. GABAPENTIN. [Concomitant]
     Active Substance: GABAPENTIN
     Dosage: 300 MG,BID
  2. ALEMTUZUMAB [Suspect]
     Active Substance: ALEMTUZUMAB
     Indication: MULTIPLE SCLEROSIS
     Dosage: 12 MG,QD
     Route: 041
     Dates: start: 20160201, end: 20160205
  3. GABAPENTIN. [Concomitant]
     Active Substance: GABAPENTIN
     Dosage: 300 MG,TID

REACTIONS (30)
  - Ill-defined disorder [Recovering/Resolving]
  - Malaise [Not Recovered/Not Resolved]
  - Anxiety [Recovering/Resolving]
  - Dyspnoea [Unknown]
  - Ovarian cancer [Not Recovered/Not Resolved]
  - Paranasal sinus hypersecretion [Unknown]
  - Pain [Not Recovered/Not Resolved]
  - Cataract [Recovered/Resolved]
  - Oesophageal carcinoma [Not Recovered/Not Resolved]
  - Lower respiratory tract infection [Not Recovered/Not Resolved]
  - Tremor [Unknown]
  - Cystitis [Recovered/Resolved]
  - Hepatic cancer [Not Recovered/Not Resolved]
  - Cholecystectomy [Unknown]
  - Vulvovaginal mycotic infection [Recovered/Resolved]
  - Nausea [Unknown]
  - Cough [Not Recovered/Not Resolved]
  - Asthma [Unknown]
  - Influenza like illness [Not Recovered/Not Resolved]
  - Somnolence [Unknown]
  - Restlessness [Unknown]
  - Gastric cancer [Not Recovered/Not Resolved]
  - Dyspnoea [Not Recovered/Not Resolved]
  - Feeling abnormal [Unknown]
  - Poor venous access [Unknown]
  - Oropharyngeal pain [Not Recovered/Not Resolved]
  - Hepatic enzyme increased [Not Recovered/Not Resolved]
  - Respiratory tract congestion [Not Recovered/Not Resolved]
  - Suture insertion [Not Recovered/Not Resolved]
  - Sinusitis [Unknown]

NARRATIVE: CASE EVENT DATE: 2016
